FAERS Safety Report 24607848 (Version 1)
Quarter: 2024Q4

REPORT INFORMATION
  Report Type: Report from Study
  Country: CA (occurrence: CA)
  Receive Date: 20241112
  Receipt Date: 20241112
  Transmission Date: 20250115
  Serious: Yes (Hospitalization, Other)
  Sender: SAMSUNG BIOEPIS
  Company Number: CA-SAMSUNG BIOEPIS-SB-2024-28993

PATIENT
  Age: 31 Year
  Sex: Male
  Weight: 81.65 kg

DRUGS (5)
  1. RENFLEXIS [Suspect]
     Active Substance: INFLIXIMAB-ABDA
     Indication: Crohn^s disease
     Route: 042
     Dates: start: 20240216
  2. RENFLEXIS [Suspect]
     Active Substance: INFLIXIMAB-ABDA
     Route: 042
     Dates: start: 20240210
  3. PREDNISONE [Suspect]
     Active Substance: PREDNISONE
     Indication: Product used for unknown indication
     Dosage: TAPERED DOSING
  4. PREDNISONE [Suspect]
     Active Substance: PREDNISONE
  5. DOXYCYCLINE [Suspect]
     Active Substance: DOXYCYCLINE
     Indication: Product used for unknown indication

REACTIONS (18)
  - Pyrexia [Recovering/Resolving]
  - Suicidal ideation [Recovering/Resolving]
  - Skin infection [Recovering/Resolving]
  - Inflammation [Recovering/Resolving]
  - Joint swelling [Recovering/Resolving]
  - Arthralgia [Recovering/Resolving]
  - Haematuria [Recovering/Resolving]
  - Mental disorder [Recovering/Resolving]
  - Off label use [Unknown]
  - Headache [Unknown]
  - Rash [Unknown]
  - Oedema peripheral [Unknown]
  - Cerebral venous sinus thrombosis [Unknown]
  - Pallor [Unknown]
  - Malaise [Unknown]
  - Depressed mood [Unknown]
  - Disability [Unknown]
  - Drug hypersensitivity [Unknown]

NARRATIVE: CASE EVENT DATE: 20241029
